FAERS Safety Report 19062742 (Version 5)
Quarter: 2021Q3

REPORT INFORMATION
  Report Type: Report from Study
  Country: CR (occurrence: CR)
  Receive Date: 20210326
  Receipt Date: 20210726
  Transmission Date: 20211014
  Serious: Yes (Other)
  Sender: FDA-Public Use
  Company Number: NVSC2021CR062698

PATIENT
  Sex: Female
  Weight: 54 kg

DRUGS (6)
  1. KISQALI [Suspect]
     Active Substance: RIBOCICLIB
     Dosage: 3 DF (AT NIGHT AFTER THE FOOD)
     Route: 065
     Dates: start: 202004, end: 202103
  2. KISQALI [Suspect]
     Active Substance: RIBOCICLIB
     Indication: BREAST CANCER
     Dosage: 600 MG, QD (3 DF)
     Route: 065
     Dates: start: 20200401, end: 202012
  3. KISQALI [Suspect]
     Active Substance: RIBOCICLIB
     Dosage: 400 MG (STARTED ON AN UNKNOWN DATE IN FEB) (2 DF)
     Route: 065
     Dates: end: 20210326
  4. LEVOTHYROXINE. [Concomitant]
     Active Substance: LEVOTHYROXINE
     Indication: HYPOTHYROIDISM
     Dosage: UNK, Q24H (1 TABLET AND A HALF, AT MORNING BEFORE BREAKFAST)
     Route: 048
  5. ATORVASTATIN [Suspect]
     Active Substance: ATORVASTATIN
     Indication: HYPERCHOLESTEROLAEMIA
     Dosage: 1 DF, Q24H (AT NIGHT)
     Route: 048
  6. FULVESTRANT. [Concomitant]
     Active Substance: FULVESTRANT
     Indication: PRODUCT USED FOR UNKNOWN INDICATION
     Dosage: UNK, QMO
     Route: 065

REACTIONS (5)
  - Malignant neoplasm progression [Unknown]
  - Breast cancer [Unknown]
  - Discomfort [Unknown]
  - Drug ineffective [Unknown]
  - Metastases to liver [Unknown]
